FAERS Safety Report 5406950-1 (Version None)
Quarter: 2007Q3

REPORT INFORMATION
  Report Type: 
  Country: None (occurrence: None)
  Receive Date: 20070802
  Receipt Date: 20070719
  Transmission Date: 20080115
  Serious: Yes (Other)
  Sender: FDA-Public Use
  Company Number: 159050ISR

PATIENT
  Age: 104 Month

DRUGS (2)
  1. DIAZEPAM [Suspect]
     Dosage: TRANSPLACENTAL
     Route: 064
  2. METHADONE HCL [Suspect]
     Dosage: TRANSPLACENTAL
     Route: 064

REACTIONS (5)
  - ATTENTION DEFICIT/HYPERACTIVITY DISORDER [None]
  - DEVELOPMENTAL DELAY [None]
  - DRUG EXPOSURE DURING PREGNANCY [None]
  - NYSTAGMUS [None]
  - VISUAL ACUITY REDUCED [None]
